APPROVED DRUG PRODUCT: RIOMET ER
Active Ingredient: METFORMIN HYDROCHLORIDE
Strength: 500MG/5ML
Dosage Form/Route: FOR SUSPENSION, EXTENDED RELEASE;ORAL
Application: N212595 | Product #001
Applicant: SUN PHARMACEUTICAL INDUSTRIES LTD
Approved: Aug 29, 2019 | RLD: Yes | RS: No | Type: DISCN

PATENTS:
Patent 9962336 | Expires: May 1, 2035